FAERS Safety Report 13449303 (Version 1)
Quarter: 2017Q2

REPORT INFORMATION
  Report Type: Spontaneous
  Country: US (occurrence: US)
  Receive Date: 20170417
  Receipt Date: 20170417
  Transmission Date: 20170830
  Serious: No
  Sender: FDA-Public Use
  Company Number: US-MISSION PHARMACAL COMPANY-1065432

PATIENT
  Age: 59 Year
  Sex: Male

DRUGS (1)
  1. THIOLA [Suspect]
     Active Substance: TIOPRONIN
     Indication: CYSTINURIA
     Route: 065
     Dates: start: 20170310, end: 20170402

REACTIONS (4)
  - Diarrhoea [Recovered/Resolved]
  - Fatigue [Unknown]
  - Ageusia [Unknown]
  - Dysgeusia [Unknown]
